FAERS Safety Report 8778562 (Version 3)
Quarter: 2012Q4

REPORT INFORMATION
  Report Type: Report from Study
  Country: JP (occurrence: JP)
  Receive Date: 20120912
  Receipt Date: 20121211
  Transmission Date: 20130627
  Serious: Yes (Other)
  Sender: FDA-Public Use
  Company Number: JP-VERTEX PHARMACEUTICAL INC.-AE-2012-007727

PATIENT
  Age: 62 Year
  Sex: Female

DRUGS (10)
  1. VX-950 (TELAPREVIR) [Suspect]
     Indication: CHRONIC HEPATITIS C
     Dosage: 2250 mg, qd
     Route: 048
     Dates: start: 20120405, end: 20120509
  2. VX-950 (TELAPREVIR) [Suspect]
     Dosage: 1500 mg, qd
     Route: 048
     Dates: start: 20120510, end: 20120627
  3. PEGINTRON                          /01543001/ [Suspect]
     Indication: CHRONIC HEPATITIS C
     Dosage: 1.5 ?g/kg, qw
     Route: 058
     Dates: start: 20120405, end: 20120405
  4. PEGINTRON                          /01543001/ [Suspect]
     Dosage: 1 ?g/kg, qw
     Route: 058
     Dates: start: 20120412, end: 20120726
  5. PEGINTRON                          /01543001/ [Suspect]
     Dosage: 1.2 ?g/kg, qw
     Route: 058
     Dates: start: 20120802, end: 20120830
  6. PEGINTRON                          /01543001/ [Suspect]
     Dosage: 1 ?g/kg, qw
     Route: 058
     Dates: start: 20120906, end: 20120913
  7. REBETOL [Suspect]
     Indication: CHRONIC HEPATITIS C
     Dosage: 600 mg, qd
     Route: 048
     Dates: start: 20120405, end: 20120425
  8. REBETOL [Suspect]
     Dosage: 400 mg, qd
     Route: 048
     Dates: start: 20120426, end: 20120501
  9. REBETOL [Suspect]
     Dosage: 200 mg, qd
     Route: 048
     Dates: start: 20120502, end: 20120919
  10. TSUMURA JUZENTAIHOTO EXTRACT GRANULES FOR ETHICAL USE [Concomitant]
     Dosage: 7.5 g, qd
     Route: 048
     Dates: end: 20120919

REACTIONS (2)
  - Neutrophil count decreased [Recovered/Resolved]
  - Neutrophil count decreased [Recovered/Resolved]
